FAERS Safety Report 25918291 (Version 3)
Quarter: 2025Q4

REPORT INFORMATION
  Report Type: Report from Study
  Country: CA (occurrence: CA)
  Receive Date: 20251014
  Receipt Date: 20251222
  Transmission Date: 20260118
  Serious: Yes (Other)
  Sender: ABBVIE
  Company Number: CA-ABBVIE-6501686

PATIENT
  Age: 33 Year
  Sex: Female

DRUGS (1)
  1. QULIPTA [Suspect]
     Active Substance: ATOGEPANT
     Indication: Migraine
     Route: 048
     Dates: start: 20250305

REACTIONS (2)
  - Renal cancer [Recovering/Resolving]
  - Nephrectomy [Unknown]

NARRATIVE: CASE EVENT DATE: 20250101
